FAERS Safety Report 17144839 (Version 1)
Quarter: 2019Q4

REPORT INFORMATION
  Report Type: Spontaneous
  Country: US (occurrence: US)
  Receive Date: 20191211
  Receipt Date: 20191211
  Transmission Date: 20200122
  Serious: Yes (Death)
  Sender: FDA-Public Use
  Company Number: None

PATIENT
  Age: 86 Year
  Sex: Male
  Weight: 85.05 kg

DRUGS (20)
  1. NOVOLOG [Concomitant]
     Active Substance: INSULIN ASPART
  2. LISINOPRIL. [Concomitant]
     Active Substance: LISINOPRIL
  3. FUROSEMIDE. [Concomitant]
     Active Substance: FUROSEMIDE
  4. FOLIC ACID. [Concomitant]
     Active Substance: FOLIC ACID
  5. IRON [Concomitant]
     Active Substance: IRON
  6. PERCOCET [Concomitant]
     Active Substance: ACETAMINOPHEN\OXYCODONE HYDROCHLORIDE
  7. TAFINLAR [Suspect]
     Active Substance: DABRAFENIB MESYLATE
     Indication: MALIGNANT MELANOMA
     Route: 048
     Dates: start: 20181103, end: 20190501
  8. VITAMIN D3 [Concomitant]
     Active Substance: CHOLECALCIFEROL
  9. PROPRANOLOL [Concomitant]
     Active Substance: PROPRANOLOL HYDROCHLORIDE
  10. TAMSULOSIN [Concomitant]
     Active Substance: TAMSULOSIN
  11. SYNTHROID [Concomitant]
     Active Substance: LEVOTHYROXINE SODIUM
  12. PRIMIDONE. [Concomitant]
     Active Substance: PRIMIDONE
  13. PREDNISONE. [Concomitant]
     Active Substance: PREDNISONE
  14. MEKINIST [Suspect]
     Active Substance: TRAMETINIB DIMETHYL SULFOXIDE
     Indication: MALIGNANT MELANOMA
     Route: 048
     Dates: start: 20181103, end: 20190501
  15. VITAMIN B12 [Concomitant]
     Active Substance: CYANOCOBALAMIN
  16. TRESIBA [Concomitant]
     Active Substance: INSULIN DEGLUDEC
  17. TRAMADOL. [Concomitant]
     Active Substance: TRAMADOL
  18. MAGNESIUM [Concomitant]
     Active Substance: MAGNESIUM
  19. FLORASTOR [Concomitant]
     Active Substance: SACCHAROMYCES CEREVISIAE
  20. ESCITALOPRAM [Concomitant]
     Active Substance: ESCITALOPRAM OXALATE

REACTIONS (1)
  - Death [None]

NARRATIVE: CASE EVENT DATE: 20190501
